FAERS Safety Report 8045772-2 (Version None)
Quarter: 2012Q1

REPORT INFORMATION
  Report Type: 
  Country: None (occurrence: None)
  Receive Date: 20120113
  Receipt Date: 20120104
  Transmission Date: 20120608
  Serious: Yes (Death)
  Sender: FDA-Public Use
  Company Number: US-MYLANLABS-2009S1009337

PATIENT
  Age: 60 Year
  Sex: Female
  Weight: 75.75 kg

DRUGS (28)
  1. RENAGEL [Concomitant]
     Route: 048
  2. DULCOLAX [Concomitant]
  3. TESSALON [Concomitant]
  4. LOVENOX [Concomitant]
     Route: 058
  5. DEMEROL [Concomitant]
     Route: 042
  6. ZOLOFT [Concomitant]
     Route: 048
  7. ALPRAZOLAM [Concomitant]
     Route: 048
  8. ZOCOR [Concomitant]
  9. LANTUS [Concomitant]
     Route: 058
  10. DEXTROSE [Concomitant]
     Route: 042
  11. NITROSTAT [Concomitant]
     Route: 060
  12. FENTANYL-100 [Suspect]
     Indication: BACK PAIN
     Dosage: Q3D
     Route: 062
     Dates: end: 20080530
  13. AMBIEN [Concomitant]
     Route: 048
  14. PHENERGAN [Concomitant]
     Route: 048
  15. MAGNESIUM HYDROXIDE TAB [Concomitant]
     Route: 048
  16. GUAIFENESIN DM [Concomitant]
     Route: 048
  17. NOVOLOG [Concomitant]
     Route: 058
  18. HUMALOG [Concomitant]
     Route: 058
  19. HUMALIN [Concomitant]
     Route: 058
  20. LIDOCAINE [Concomitant]
     Route: 042
  21. ZOFRAN [Concomitant]
     Route: 042
  22. CLONIDINE [Concomitant]
     Route: 048
  23. EPOGEN [Concomitant]
     Route: 042
  24. NOVOLIN 70/30 [Concomitant]
     Route: 058
  25. ATROPINE SULFATE [Concomitant]
  26. EXTRA STRENGTH TYLENOL [Concomitant]
     Route: 048
  27. BENADRYL [Concomitant]
     Route: 048
  28. HEPARIN [Concomitant]
     Route: 042

REACTIONS (1)
  - TOXICITY TO VARIOUS AGENTS [None]
